FAERS Safety Report 8407681-6 (Version None)
Quarter: 2012Q2

REPORT INFORMATION
  Report Type: 
  Country: None (occurrence: None)
  Receive Date: 20120604
  Receipt Date: 20120529
  Transmission Date: 20120825
  Serious: No
  Sender: FDA-Public Use
  Company Number: US-PFIZER INC-2012129226

PATIENT
  Sex: Female
  Weight: 26.757 kg

DRUGS (2)
  1. BACTRIM [Suspect]
     Indication: STAPHYLOCOCCAL INFECTION
     Dosage: 40 MG ONCE
     Dates: start: 20120525, end: 20120525
  2. CLINDAMYCIN PALMITATE HYDROCHLORIDE [Suspect]
     Indication: STAPHYLOCOCCAL INFECTION
     Dosage: 10 ML, 3X/DAY
     Dates: start: 20120521

REACTIONS (2)
  - INCORRECT STORAGE OF DRUG [None]
  - DRUG INEFFECTIVE [None]
